FAERS Safety Report 25203754 (Version 2)
Quarter: 2025Q2

REPORT INFORMATION
  Report Type: Spontaneous
  Country: US (occurrence: US)
  Receive Date: 20250416
  Receipt Date: 20250518
  Transmission Date: 20250717
  Serious: No
  Sender: SANOFI AVENTIS
  Company Number: US-SA-2025SA108197

PATIENT
  Age: 36 Year
  Sex: Female

DRUGS (18)
  1. DUPIXENT [Suspect]
     Active Substance: DUPILUMAB
     Indication: Asthma
     Dosage: 300 MG, QOW
     Route: 058
     Dates: start: 20231117
  2. ADDERALL [Concomitant]
     Active Substance: AMPHETAMINE ASPARTATE\AMPHETAMINE SULFATE\DEXTROAMPHETAMINE SACCHARATE\DEXTROAMPHETAMINE SULFATE
  3. ESCITALOPRAM [Concomitant]
     Active Substance: ESCITALOPRAM OXALATE
  4. ESCITALOPRAM [Concomitant]
     Active Substance: ESCITALOPRAM OXALATE
  5. GABAPENTIN [Concomitant]
     Active Substance: GABAPENTIN
  6. IBUPROFEN [Concomitant]
     Active Substance: IBUPROFEN
  7. LEXAPRO [Concomitant]
     Active Substance: ESCITALOPRAM OXALATE
  8. METHYLPREDNISOLONE [Concomitant]
     Active Substance: METHYLPREDNISOLONE
  9. MIRTAZAPINE [Concomitant]
     Active Substance: MIRTAZAPINE
  10. MIRTAZAPINE [Concomitant]
     Active Substance: MIRTAZAPINE
  11. MONTELUKAST [Concomitant]
     Active Substance: MONTELUKAST
  12. QUETIAPINE [Concomitant]
     Active Substance: QUETIAPINE
  13. QUETIAPINE [Concomitant]
     Active Substance: QUETIAPINE
  14. TAZAROTENE [Concomitant]
     Active Substance: TAZAROTENE
  15. TAZORAC [Concomitant]
     Active Substance: TAZAROTENE
  16. TRAZODONE [Concomitant]
     Active Substance: TRAZODONE HYDROCHLORIDE
  17. TRAZODONE [Concomitant]
     Active Substance: TRAZODONE HYDROCHLORIDE
  18. ALPRAZOLAM [Concomitant]
     Active Substance: ALPRAZOLAM

REACTIONS (5)
  - Asthma [Unknown]
  - Impaired quality of life [Unknown]
  - Surgery [Unknown]
  - Oral herpes [Unknown]
  - Drug ineffective [Unknown]

NARRATIVE: CASE EVENT DATE: 20250301
